FAERS Safety Report 16684773 (Version 2)
Quarter: 2020Q3

REPORT INFORMATION
  Report Type: Spontaneous
  Country: US (occurrence: US)
  Receive Date: 20190808
  Receipt Date: 20200710
  Transmission Date: 20201102
  Serious: No
  Sender: FDA-Public Use
  Company Number: US-PFIZER INC-2019337893

PATIENT
  Age: 13 Year
  Sex: Male

DRUGS (2)
  1. GENOTROPIN MQ [Suspect]
     Active Substance: SOMATROPIN
     Indication: CRANIOPHARYNGIOMA
     Dosage: 1.2 MG, DAILY
     Dates: start: 201806
  2. GENOTROPIN MQ [Suspect]
     Active Substance: SOMATROPIN
     Dosage: 1.4 MG, DAILY
     Dates: start: 201808

REACTIONS (12)
  - Therapeutic product effect incomplete [Unknown]
  - Polyuria [Unknown]
  - Blood testosterone decreased [Unknown]
  - Polydipsia [Unknown]
  - Product use in unapproved indication [Unknown]
  - Blood luteinising hormone decreased [Unknown]
  - Hyperventilation [Unknown]
  - Blood thyroid stimulating hormone decreased [Unknown]
  - Injection site pain [Unknown]
  - Off label use [Unknown]
  - Vitamin D decreased [Unknown]
  - Blood follicle stimulating hormone decreased [Unknown]

NARRATIVE: CASE EVENT DATE: 201806
